FAERS Safety Report 14093390 (Version 1)
Quarter: 2017Q4

REPORT INFORMATION
  Report Type: Spontaneous
  Country: VN (occurrence: VN)
  Receive Date: 20171016
  Receipt Date: 20171016
  Transmission Date: 20180321
  Serious: Yes (Other)
  Sender: FDA-Public Use
  Company Number: PHHY2017VN148591

PATIENT
  Age: 62 Year
  Sex: Female

DRUGS (2)
  1. NILOTINIB [Suspect]
     Active Substance: NILOTINIB
     Indication: MULTIPLE SYSTEM ATROPHY
     Dosage: 200 MG, QD
     Route: 048
  2. NILOTINIB [Suspect]
     Active Substance: NILOTINIB
     Dosage: 300 MG, QD
     Route: 048

REACTIONS (10)
  - Pneumonia [Unknown]
  - Electrocardiogram QT prolonged [Unknown]
  - Dysgraphia [Unknown]
  - Skin irritation [Recovered/Resolved]
  - Hallucination [Unknown]
  - Dizziness [Recovered/Resolved]
  - Product use in unapproved indication [Unknown]
  - Headache [Recovered/Resolved]
  - Back pain [Unknown]
  - Nasopharyngitis [Unknown]
